FAERS Safety Report 9001000 (Version 2)
Quarter: 2013Q1

REPORT INFORMATION
  Report Type: Spontaneous
  Country: US (occurrence: None)
  Receive Date: 20121226
  Receipt Date: 20130207
  Transmission Date: 20140127
  Serious: Yes (Hospitalization)
  Sender: FDA-Public Use
  Company Number: 2012SGN00593

PATIENT
  Age: 20 Year
  Sex: Male

DRUGS (4)
  1. BRENTUXIMAB VEDOTIN (BRENTUXIMAB VEDOTIN) INJECTION [Suspect]
     Indication: HODGKIN^S DISEASE
     Dates: start: 20121018, end: 20121129
  2. IFOSFAMIDE (IFOSFAMIDE) [Suspect]
     Indication: HODGKIN^S DISEASE
     Dates: start: 20121211, end: 20121211
  3. CARBOPLATIN (CARBOPLATIN) [Suspect]
     Indication: HODGKIN^S DISEASE
     Dates: start: 20121211, end: 20121211
  4. ETOPOSIDE (ETOPOSIDE PHOSPHATE) [Suspect]
     Indication: HODGKIN^S DISEASE
     Dates: start: 20121211, end: 20121211

REACTIONS (8)
  - Febrile neutropenia [None]
  - Pyrexia [None]
  - Toothache [None]
  - Oropharyngeal pain [None]
  - Rash [None]
  - Rash [None]
  - Enzyme abnormality [None]
  - Pericoronitis [None]
